FAERS Safety Report 8861482 (Version 1)
Quarter: 2012Q4

REPORT INFORMATION
  Report Type: Spontaneous
  Country: US (occurrence: None)
  Receive Date: 20121022
  Receipt Date: 20121022
  Transmission Date: 20130627
  Serious: Yes (Death, Hospitalization, Other)
  Sender: FDA-Public Use
  Company Number: VAL_00914_2012

PATIENT
  Age: 24 Year
  Sex: Female

DRUGS (8)
  1. METOPROLOL SUCCINATE [Suspect]
     Indication: CARDIAC FAILURE
  2. LISINOPRIL [Suspect]
     Indication: CARDIAC FAILURE
  3. THYROXINE (NOT SPECIFIED) [Suspect]
     Indication: PRODUCT USED FOR UNKNOWN INDICATION
     Dosage: (DF)
  4. FUROSEMIDE [Suspect]
     Indication: LOW CARDIAC OUTPUT SYNDROME
  5. MILRINONE [Suspect]
     Indication: CARDIAC FAILURE ACUTE
     Dosage: (DF)
  6. LEVOTHYROXINE [Concomitant]
  7. PREDNISONE [Concomitant]
  8. GLUCOCORTICOIDS [Concomitant]

REACTIONS (8)
  - Hepatic failure [None]
  - Pyrexia [None]
  - White blood cell count increased [None]
  - Lactic acidosis [None]
  - Hypotension [None]
  - Septic shock [None]
  - Pericardial effusion [None]
  - Metabolic cardiomyopathy [None]
